FAERS Safety Report 16842854 (Version 1)
Quarter: 2019Q3

REPORT INFORMATION
  Report Type: Report from Study
  Country: FR (occurrence: FR)
  Receive Date: 20190924
  Receipt Date: 20190924
  Transmission Date: 20191005
  Serious: Yes (Other)
  Sender: FDA-Public Use
  Company Number: FR-ROCHE-2420682

PATIENT

DRUGS (1)
  1. SOMATROPIN. [Suspect]
     Active Substance: SOMATROPIN
     Indication: HAEMODIALYSIS
     Dosage: DOSE : 1 IU/KG PER WEEK BY DAILY SUBCUTANEOUS INJECTION FOR 1 +/- 5 YEARS
     Route: 058

REACTIONS (1)
  - Pancreatitis [Unknown]
